FAERS Safety Report 23254743 (Version 2)
Quarter: 2024Q1

REPORT INFORMATION
  Report Type: Spontaneous
  Country: US (occurrence: US)
  Receive Date: 20231203
  Receipt Date: 20240308
  Transmission Date: 20240410
  Serious: Yes (Hospitalization)
  Sender: FDA-Public Use
  Company Number: US-CHIESI-2023CHF06298

PATIENT
  Sex: Male
  Weight: 75 kg

DRUGS (3)
  1. FERRIPROX [Suspect]
     Active Substance: DEFERIPRONE
     Indication: Myelofibrosis
     Dosage: 3000 MILLIGRAM, QD
     Route: 048
  2. FERRIPROX [Suspect]
     Active Substance: DEFERIPRONE
     Indication: Transfusion
     Dosage: 6000 MILLIGRAM, QD
  3. FERRIPROX [Suspect]
     Active Substance: DEFERIPRONE
     Indication: Serum ferritin abnormal

REACTIONS (4)
  - Internal haemorrhage [Unknown]
  - Chromaturia [Unknown]
  - Drug ineffective [Unknown]
  - Off label use [Not Recovered/Not Resolved]
